FAERS Safety Report 12531106 (Version 3)
Quarter: 2017Q2

REPORT INFORMATION
  Report Type: Spontaneous
  Country: DE (occurrence: DE)
  Receive Date: 20160706
  Receipt Date: 20170510
  Transmission Date: 20170830
  Serious: Yes (Congenital Anomaly, Other)
  Sender: FDA-Public Use
  Company Number: PHHY2016DE092375

PATIENT
  Age: 0 Day
  Sex: Female
  Weight: 2.49 kg

DRUGS (1)
  1. GILENYA [Suspect]
     Active Substance: FINGOLIMOD HYDROCHLORIDE
     Indication: FOETAL EXPOSURE DURING PREGNANCY
     Dosage: MATERNAL DOSE: 0.5 MG, DAILY
     Route: 064
     Dates: end: 201507

REACTIONS (4)
  - Foetal exposure during pregnancy [Unknown]
  - Congenital central nervous system anomaly [Unknown]
  - Premature baby [Unknown]
  - Breech presentation [Unknown]

NARRATIVE: CASE EVENT DATE: 20160324
